FAERS Safety Report 7389801-8 (Version None)
Quarter: 2011Q1

REPORT INFORMATION
  Report Type: 
  Country: None (occurrence: None)
  Receive Date: 20110323
  Receipt Date: 20110314
  Transmission Date: 20110831
  Serious: Yes (Hospitalization, Other)
  Sender: FDA-Public Use
  Company Number: 029310

PATIENT
  Age: 38 Year
  Sex: Male

DRUGS (4)
  1. KEPPRA [Suspect]
     Indication: EPILEPSY
     Dosage: (500 MG) ; (1250 MG)
     Dates: start: 20110216, end: 20110226
  2. KEPPRA [Suspect]
     Indication: EPILEPSY
     Dosage: (500 MG) ; (1250 MG)
     Dates: start: 20110127
  3. CARBAMAZEPINE [Concomitant]
  4. PHENYTOIN [Concomitant]

REACTIONS (6)
  - DEPRESSION SUICIDAL [None]
  - DIZZINESS [None]
  - INTENTIONAL SELF-INJURY [None]
  - SOMNOLENCE [None]
  - LACERATION [None]
  - SUICIDAL IDEATION [None]
